FAERS Safety Report 14296962 (Version 5)
Quarter: 2018Q4

REPORT INFORMATION
  Report Type: Spontaneous
  Country: US (occurrence: US)
  Receive Date: 20171218
  Receipt Date: 20181210
  Transmission Date: 20190204
  Serious: Yes (Hospitalization, Other)
  Sender: FDA-Public Use
  Company Number: US-PFIZER INC-2016223487

PATIENT
  Age: 77 Year
  Sex: Female
  Weight: 77 kg

DRUGS (19)
  1. ALEVE [Concomitant]
     Active Substance: NAPROXEN SODIUM
     Dosage: 2 DF, 2X/DAY
     Route: 048
  2. CAPCID [Concomitant]
     Indication: GASTROOESOPHAGEAL REFLUX DISEASE
     Dosage: 20 MG, 2X/DAY
  3. ROBAXIN [Concomitant]
     Active Substance: METHOCARBAMOL
     Dosage: 750 MG, AS NEEDED (NIGHTLY AS NEEDED)
     Route: 048
  4. LIORESAL [Concomitant]
     Active Substance: BACLOFEN
     Dosage: 10 MG, 1X/DAY (EVERY NIGHT AT BEDTIME)
     Route: 048
  5. PROVENTIL HFA [Concomitant]
     Active Substance: ALBUTEROL SULFATE
     Indication: WHEEZING
     Dosage: 216 UG, AS NEEDED (2 PUFFS INTO THE LUNGS EVERY 6 HOURS AS NEEDED)
     Route: 055
  6. NORVASC [Concomitant]
     Active Substance: AMLODIPINE BESYLATE
     Indication: HYPERTENSION
     Dosage: 10 MG, DAILY
     Route: 048
  7. LYRICA [Suspect]
     Active Substance: PREGABALIN
     Indication: FIBROMYALGIA
     Dosage: 75 MG, AS NEEDED (TAKE ONE CAPSULE BY MOUTH THREE TIMES A DAY AS NEEDED)(QTY: 90/ REFILL: 5 (FIVE))
     Route: 048
  8. LYRICA [Suspect]
     Active Substance: PREGABALIN
     Indication: MULTIPLE SCLEROSIS
     Dosage: 75 MG, 2X/DAY
     Route: 048
  9. THERAGRAN-M [Concomitant]
     Active Substance: VITAMINS
     Dosage: 1 DF, DAILY
     Route: 048
  10. LYRICA [Suspect]
     Active Substance: PREGABALIN
     Indication: NEUROPATHY PERIPHERAL
     Dosage: 75 MG, UNK (2-3 TIMES A DAY)
     Route: 048
  11. LYRICA [Suspect]
     Active Substance: PREGABALIN
     Indication: OSTEOARTHRITIS
     Dosage: 75 MG, AS NEEDED (THREE TIMES A DAY AS NEEDED)
     Route: 048
  12. KRILL OIL [Concomitant]
     Active Substance: DIETARY SUPPLEMENT
     Dosage: 300 MG, DAILY
     Route: 048
  13. CALCIUM CARBONATE AND VITAMIN D [Concomitant]
     Active Substance: CALCIUM CARBONATE\VITAMIN D
     Dosage: UNK, DAILY
     Route: 048
  14. VITAMIN C [Concomitant]
     Active Substance: ASCORBIC ACID
     Dosage: 500 MG, DAILY
     Route: 048
  15. ASPIRIN 81 [Concomitant]
     Active Substance: ASPIRIN
     Dosage: 81 MG, DAILY
     Route: 048
  16. COENZYME Q10 [Concomitant]
     Active Substance: UBIDECARENONE
     Dosage: 100 MG, 1X/DAY
     Route: 048
  17. METROGEL [Concomitant]
     Active Substance: METRONIDAZOLE
     Dosage: UNK, 2X/DAY
     Route: 061
  18. BACLOFEN. [Concomitant]
     Active Substance: BACLOFEN
     Indication: MUSCULOSKELETAL DISCOMFORT
     Dosage: 10 MG, 1X/DAY
     Route: 048
  19. FLONASE [Concomitant]
     Active Substance: FLUTICASONE PROPIONATE
     Dosage: 2 DF, AS NEEDED (ONE SPRAY IN EACH NOSTRIL ONCE DAILY AS NEEDED)
     Route: 045

REACTIONS (9)
  - Aphasia [Unknown]
  - Fall [Unknown]
  - Product use issue [Unknown]
  - Intentional product misuse [Unknown]
  - Amnesia [Unknown]
  - Subdural haematoma [Unknown]
  - Road traffic accident [Unknown]
  - Loss of consciousness [Unknown]
  - Head injury [Recovered/Resolved with Sequelae]

NARRATIVE: CASE EVENT DATE: 20171028
